FAERS Safety Report 8457050 (Version 6)
Quarter: 2013Q2

REPORT INFORMATION
  Report Type: Report from Study
  Country: US (occurrence: US)
  Receive Date: 20120313
  Receipt Date: 20130621
  Transmission Date: 20140414
  Serious: Yes (Hospitalization)
  Sender: FDA-Public Use
  Company Number: US-ROCHE-1047083

PATIENT
  Age: 0 Year
  Sex: Male
  Weight: 4.4 kg

DRUGS (8)
  1. OMALIZUMAB [Suspect]
     Indication: PRODUCT USED FOR UNKNOWN INDICATION
     Dosage: 375 MG, Q3W
     Route: 064
     Dates: start: 20080306, end: 20110511
  2. OMALIZUMAB [Suspect]
     Dosage: 375 MG, Q3W
     Route: 064
     Dates: start: 20110713
  3. OMALIZUMAB [Suspect]
     Dosage: 375 MG, Q3W
     Route: 064
     Dates: start: 20110818
  4. OMALIZUMAB [Suspect]
     Dosage: 375 MG, Q3W
     Route: 064
     Dates: start: 20110915
  5. FER IN SOL [Concomitant]
     Indication: ANAEMIA
  6. TYLENOL [Concomitant]
     Indication: PYREXIA
  7. TYLENOL [Concomitant]
     Indication: PAIN
  8. IBUPROFEN [Concomitant]
     Indication: PAIN

REACTIONS (12)
  - Post procedural haemorrhage [Recovered/Resolved]
  - Umbilical granuloma [Unknown]
  - Eczema [Unknown]
  - Dysphonia [Unknown]
  - Ear infection [Unknown]
  - Cough [Unknown]
  - Pyrexia [Unknown]
  - Dermatitis diaper [Unknown]
  - Upper respiratory tract infection [Unknown]
  - Otitis media [Unknown]
  - Maternal exposure timing unspecified [Unknown]
  - Exposure during breast feeding [Unknown]
